FAERS Safety Report 4998384-9 (Version None)
Quarter: 2006Q2

REPORT INFORMATION
  Report Type: 
  Country: None (occurrence: None)
  Receive Date: 20060508
  Receipt Date: 20060425
  Transmission Date: 20061013
  Serious: Yes (Hospitalization, Other)
  Sender: FDA-Public Use
  Company Number: 2006053258

PATIENT
  Age: 67 Year
  Sex: Female

DRUGS (2)
  1. BEXTRA [Suspect]
     Indication: BACK PAIN
     Dosage: 20 MG (20 MG, 1 IN 1 D), ORAL
     Route: 048
     Dates: start: 20020801, end: 20020101
  2. BACTRIM [Suspect]
     Indication: ILL-DEFINED DISORDER
     Dates: start: 20020101

REACTIONS (1)
  - STEVENS-JOHNSON SYNDROME [None]
